FAERS Safety Report 10304125 (Version 1)
Quarter: 2014Q3

REPORT INFORMATION
  Report Type: Spontaneous
  Country: US (occurrence: US)
  Receive Date: 20140714
  Receipt Date: 20140714
  Transmission Date: 20150326
  Serious: No
  Sender: FDA-Public Use
  Company Number: US-ASTRAZENECA-2014SE47897

PATIENT
  Age: 63 Year
  Sex: Female

DRUGS (7)
  1. ARIMIDEX [Suspect]
     Active Substance: ANASTROZOLE
     Route: 048
     Dates: start: 200802, end: 200806
  2. AROMASIN [Concomitant]
     Active Substance: EXEMESTANE
     Route: 048
     Dates: start: 201309
  3. DICLOFENAC SODIUM. [Concomitant]
     Active Substance: DICLOFENAC SODIUM
     Route: 048
  4. COMPAZINE [Concomitant]
     Active Substance: PROCHLORPERAZINE MALEATE
     Indication: NAUSEA
     Dosage: 1 TABLET, EVERY 6 HOURS AS NEEDED
     Route: 048
  5. DEMADEX [Concomitant]
     Active Substance: TORSEMIDE
     Route: 048
  6. PENLAC [Concomitant]
     Active Substance: CICLOPIROX
     Dosage: USE ON AFFECTED NAIL DAILY
  7. HYDROCORTISONE. [Concomitant]
     Active Substance: HYDROCORTISONE
     Dosage: USE ON AFFECTED AREA OF FACE AND NECK AT NIGHT

REACTIONS (14)
  - Drug intolerance [Unknown]
  - Gastrooesophageal reflux disease [Unknown]
  - Postmastectomy lymphoedema syndrome [Unknown]
  - Diabetes mellitus [Unknown]
  - Hypertension [Unknown]
  - Asthma [Unknown]
  - Depression [Unknown]
  - Stress urinary incontinence [Unknown]
  - Arthralgia [Unknown]
  - Arthritis [Unknown]
  - Sleep apnoea syndrome [Unknown]
  - Obesity [Unknown]
  - Hyperlipidaemia [Unknown]
  - Arrhythmia [Unknown]
